FAERS Safety Report 18693892 (Version 1)
Quarter: 2021Q1

REPORT INFORMATION
  Report Type: Spontaneous
  Country: PL (occurrence: PL)
  Receive Date: 20210104
  Receipt Date: 20210104
  Transmission Date: 20210419
  Serious: Yes (Other)
  Sender: FDA-Public Use
  Company Number: NVSC2020PL341463

PATIENT
  Age: 50 Year
  Sex: Female

DRUGS (2)
  1. MIDOSTAURIN [Suspect]
     Active Substance: MIDOSTAURIN
     Indication: ACUTE MYELOID LEUKAEMIA
     Dosage: UNK
     Route: 065
     Dates: start: 20201019
  2. MIDOSTAURIN [Suspect]
     Active Substance: MIDOSTAURIN
     Dosage: 25 MG, BID
     Route: 048

REACTIONS (9)
  - Renal failure [Recovered/Resolved]
  - Chronic respiratory failure [Unknown]
  - Pyrexia [Recovered/Resolved]
  - Blood creatinine increased [Recovered/Resolved]
  - Off label use [Unknown]
  - Asthenia [Unknown]
  - COVID-19 [Unknown]
  - Erythema [Unknown]
  - Toxicity to various agents [Unknown]
